FAERS Safety Report 6310441-3 (Version None)
Quarter: 2009Q3

REPORT INFORMATION
  Report Type: 
  Country: None (occurrence: None)
  Receive Date: 20090814
  Receipt Date: 20090810
  Transmission Date: 20100115
  Serious: Yes (Hospitalization)
  Sender: FDA-Public Use
  Company Number: JP-GENENTECH-288429

PATIENT
  Sex: Male

DRUGS (21)
  1. MABTHERA [Suspect]
     Indication: NON-HODGKIN'S LYMPHOMA
     Dosage: 698 MG, Q3W
     Route: 042
     Dates: start: 20090416
  2. ENDOXAN [Suspect]
     Indication: NON-HODGKIN'S LYMPHOMA
     Dosage: 1360 MG, UNK
     Route: 042
     Dates: start: 20090416, end: 20090416
  3. ENDOXAN [Suspect]
     Dosage: 1371.75 MG, Q3W
     Route: 042
     Dates: start: 20090507
  4. ADRIACIN [Suspect]
     Indication: NON-HODGKIN'S LYMPHOMA
     Dosage: 90 MG, UNK
     Route: 042
     Dates: start: 20090416, end: 20090416
  5. ADRIACIN [Suspect]
     Dosage: 91.45 MG, Q3W
     Route: 042
     Dates: start: 20090507
  6. ONCOVIN [Suspect]
     Indication: NON-HODGKIN'S LYMPHOMA
     Dosage: 2 MG, Q3W
     Route: 042
     Dates: start: 20090416
  7. PREDNISOLONE [Suspect]
     Indication: NON-HODGKIN'S LYMPHOMA
     Dosage: 100 MG, QDX5D/21DC
     Route: 048
     Dates: start: 20090416
  8. CALONAL [Concomitant]
     Indication: PREMEDICATION
     Dosage: 400 MG, UNK
     Route: 048
     Dates: start: 20090416
  9. POLARAMINE [Concomitant]
     Indication: PREMEDICATION
     Dosage: 2 MG, UNK
     Route: 048
     Dates: start: 20090416
  10. KYTRIL [Concomitant]
     Indication: PROPHYLAXIS
     Dosage: 3 MG, Q3W
     Route: 042
     Dates: start: 20090416
  11. SOLDEM [Concomitant]
     Indication: DRUG USE FOR UNKNOWN INDICATION
     Dosage: 200 ML, Q3W
     Route: 042
     Dates: start: 20090416
  12. MEYLON (JAPAN) [Concomitant]
     Indication: DRUG USE FOR UNKNOWN INDICATION
     Dosage: 20 ML, Q3W
     Route: 042
     Dates: start: 20090416
  13. TENORMIN [Concomitant]
     Indication: HYPERTENSION
     Dosage: 50 MG, QD
     Route: 048
  14. BLOPRESS [Concomitant]
     Indication: HYPERTENSION
     Dosage: 4 MG, QD
     Route: 048
  15. AMLODINE [Concomitant]
     Indication: HYPERTENSION
     Dosage: 5 MG, QD
     Route: 048
  16. URINORM [Concomitant]
     Indication: HYPERURICAEMIA
     Dosage: 50 MG, QD
     Route: 048
  17. BEZATOL [Concomitant]
     Indication: HYPERLIPIDAEMIA
     Dosage: 200 MG, QD
     Route: 048
  18. BAKTAR [Concomitant]
     Indication: PROPHYLAXIS
     Dosage: UNK
     Route: 048
     Dates: start: 20090417
  19. DIFLUCAN [Concomitant]
     Indication: INFECTION PROPHYLAXIS
     Dosage: 200 MG, QD
     Route: 048
     Dates: start: 20090417
  20. GASTER [Concomitant]
     Indication: DRUG USE FOR UNKNOWN INDICATION
     Dosage: 40 MG, QD
     Route: 048
     Dates: start: 20090521
  21. BENZALIN [Concomitant]
     Indication: DRUG USE FOR UNKNOWN INDICATION
     Dosage: 5 MG, QD
     Route: 048
     Dates: start: 20090415, end: 20090422

REACTIONS (1)
  - FEBRILE NEUTROPENIA [None]
